FAERS Safety Report 25851106 (Version 2)
Quarter: 2025Q4

REPORT INFORMATION
  Report Type: Report from Study
  Country: TW (occurrence: TW)
  Receive Date: 20250926
  Receipt Date: 20251015
  Transmission Date: 20260117
  Serious: Yes (Hospitalization)
  Sender: BIOGEN
  Company Number: TW-BIOGEN-2025BI01323262

PATIENT
  Age: 46 Year
  Sex: Male
  Weight: 54 kg

DRUGS (1)
  1. PLEGRIDY [Suspect]
     Active Substance: PEGINTERFERON BETA-1A
     Indication: Multiple sclerosis
     Route: 050
     Dates: start: 20220125

REACTIONS (2)
  - Central nervous system lesion [Unknown]
  - Micturition disorder [Recovered/Resolved]

NARRATIVE: CASE EVENT DATE: 20250829
